FAERS Safety Report 7957446-4 (Version None)
Quarter: 2011Q4

REPORT INFORMATION
  Report Type: 
  Country: None (occurrence: None)
  Receive Date: 20111205
  Receipt Date: 20111202
  Transmission Date: 20120403
  Serious: Yes (Death, Hospitalization)
  Sender: FDA-Public Use
  Company Number: US-PFIZER INC-2011258214

PATIENT
  Sex: Male

DRUGS (4)
  1. PROTONIX [Suspect]
     Dosage: 40 MG, 1X/DAY
     Route: 048
  2. LIPITOR [Suspect]
     Indication: BLOOD CHOLESTEROL INCREASED
     Dosage: 80 MG, 1X/DAY
     Route: 048
  3. LIPITOR [Suspect]
     Dosage: UNK
  4. PROTONIX [Suspect]
     Dosage: UNK

REACTIONS (2)
  - VOMITING [None]
  - MYOCARDIAL INFARCTION [None]
